FAERS Safety Report 14118102 (Version 1)
Quarter: 2017Q4

REPORT INFORMATION
  Report Type: Spontaneous
  Country: US (occurrence: US)
  Receive Date: 20171023
  Receipt Date: 20171023
  Transmission Date: 20180321
  Serious: No
  Sender: FDA-Public Use
  Company Number: US-ALLERGAN-1674153US

PATIENT
  Age: 70 Year
  Sex: Male
  Weight: 58.96 kg

DRUGS (2)
  1. SENNA [Concomitant]
     Active Substance: SENNA LEAF\SENNOSIDES\SENNOSIDES A AND B
     Indication: CONSTIPATION
     Dosage: 2 DF, QHS
     Route: 048
  2. LINZESS [Suspect]
     Active Substance: LINACLOTIDE
     Indication: CONSTIPATION
     Dosage: 145 ?G, QD, 30 MIN BEFORE FOOD
     Route: 048
     Dates: start: 20161025

REACTIONS (4)
  - Gastrointestinal pain [Not Recovered/Not Resolved]
  - Drug ineffective for unapproved indication [Unknown]
  - Abdominal pain upper [Not Recovered/Not Resolved]
  - Gastric dilatation [Not Recovered/Not Resolved]

NARRATIVE: CASE EVENT DATE: 20161026
